FAERS Safety Report 5200346-3 (Version None)
Quarter: 2007Q1

REPORT INFORMATION
  Report Type: 
  Country: None (occurrence: None)
  Receive Date: 20070105
  Receipt Date: 20061227
  Transmission Date: 20070707
  Serious: Yes (Hospitalization, Other)
  Sender: FDA-Public Use
  Company Number: NO-PFIZER INC-2006154023

PATIENT
  Sex: Male

DRUGS (14)
  1. XANOR [Suspect]
     Indication: SOCIAL PHOBIA
     Dosage: TEXT:UNKNOWN
     Route: 048
     Dates: start: 19990701, end: 20040310
  2. SOBRIL [Suspect]
     Dosage: TEXT:UNKNOWN
  3. IMOVANE [Suspect]
     Dosage: TEXT:UNKNOWN
  4. VALIUM [Suspect]
     Dosage: TEXT:UNKNOWN
  5. ALL OTHER THERAPEUTIC PRODUCTS [Suspect]
     Dosage: TEXT:UNKNOWN
  6. STESOLID [Concomitant]
  7. VIVAL [Concomitant]
  8. ZOPICLONE [Concomitant]
  9. ZOLPIDEM TARTRATE [Concomitant]
  10. ACETAMINOPHEN AND CODEINE PHOSPHATE [Concomitant]
  11. PARALGIN FORTE [Concomitant]
  12. SOLVIPECT COMP [Concomitant]
  13. ROHYPNOL [Concomitant]
  14. ALCOHOL [Concomitant]

REACTIONS (16)
  - AGGRESSION [None]
  - ALCOHOL POISONING [None]
  - BLOOD CHOLESTEROL INCREASED [None]
  - DEPRESSION [None]
  - DRUG DEPENDENCE [None]
  - FRUSTRATION [None]
  - HYPERTENSION [None]
  - INTENTIONAL OVERDOSE [None]
  - LOSS OF EMPLOYMENT [None]
  - MULTIPLE DRUG OVERDOSE [None]
  - PERSONALITY DISORDER [None]
  - PSYCHOTIC DISORDER [None]
  - SEXUAL ABUSE [None]
  - SOCIAL PHOBIA [None]
  - SUICIDAL IDEATION [None]
  - WEIGHT INCREASED [None]
